FAERS Safety Report 23249714 (Version 3)
Quarter: 2024Q1

REPORT INFORMATION
  Report Type: Spontaneous
  Country: US (occurrence: US)
  Receive Date: 20231201
  Receipt Date: 20240329
  Transmission Date: 20240410
  Serious: No
  Sender: FDA-Public Use
  Company Number: US-BRISTOL-MYERS SQUIBB COMPANY-2023-173154

PATIENT
  Age: 80 Year
  Sex: Female
  Weight: 86.18 kg

DRUGS (2)
  1. POMALYST [Suspect]
     Active Substance: POMALIDOMIDE
     Indication: Plasma cell myeloma
     Route: 048
  2. POMALYST [Suspect]
     Active Substance: POMALIDOMIDE
     Route: 048

REACTIONS (7)
  - Pruritus [Unknown]
  - Fatigue [Unknown]
  - Lethargy [Unknown]
  - Joint swelling [Recovering/Resolving]
  - Seasonal allergy [Recovering/Resolving]
  - Bone pain [Recovering/Resolving]
  - Decreased appetite [Recovering/Resolving]
